FAERS Safety Report 13390928 (Version 1)
Quarter: 2017Q1

REPORT INFORMATION
  Report Type: Spontaneous
  Country: AU (occurrence: AU)
  Receive Date: 20170331
  Receipt Date: 20170331
  Transmission Date: 20170429
  Serious: Yes (Other)
  Sender: FDA-Public Use
  Company Number: AU-009507513-1703AUS013673

PATIENT
  Age: 2 Year
  Sex: Male
  Weight: 25 kg

DRUGS (1)
  1. SINGULAIR [Suspect]
     Active Substance: MONTELUKAST SODIUM
     Dosage: 4 MG, QD
     Route: 048
     Dates: start: 20121012, end: 20150601

REACTIONS (7)
  - Mood swings [Recovering/Resolving]
  - Aggression [Recovering/Resolving]
  - Personality change [Recovering/Resolving]
  - Speech disorder [Recovering/Resolving]
  - Disturbance in attention [Recovering/Resolving]
  - Screaming [Recovering/Resolving]
  - Learning disorder [Recovering/Resolving]

NARRATIVE: CASE EVENT DATE: 20121012
